FAERS Safety Report 9335748 (Version 1)
Quarter: 2013Q2

REPORT INFORMATION
  Report Type: Spontaneous
  Country: US (occurrence: US)
  Receive Date: 20130606
  Receipt Date: 20130606
  Transmission Date: 20140414
  Serious: No
  Sender: FDA-Public Use
  Company Number: US-AMGEN-USASP2013024989

PATIENT
  Age: 67 Year
  Sex: Female

DRUGS (13)
  1. PROLIA [Suspect]
     Indication: OSTEOPOROSIS POSTMENOPAUSAL
  2. TYLENOL                            /00020001/ [Concomitant]
  3. PREDNISONE [Concomitant]
  4. LEVOTHYROXINE [Concomitant]
  5. FOLIC ACID [Concomitant]
  6. PLAQUENIL                          /00072602/ [Concomitant]
  7. LYRICA [Concomitant]
  8. CYCLOBENZAPRINE [Concomitant]
     Dates: start: 201212
  9. ZANTAC [Concomitant]
  10. MULTIVITAMIN                       /00097801/ [Concomitant]
  11. CALCITRIOL [Concomitant]
  12. VITAMIN D 2000 [Concomitant]
  13. BENAZEPRIL [Concomitant]

REACTIONS (1)
  - Arthralgia [Unknown]
